FAERS Safety Report 14014120 (Version 1)
Quarter: 2017Q3

REPORT INFORMATION
  Report Type: Spontaneous
  Country: FR (occurrence: FR)
  Receive Date: 20170927
  Receipt Date: 20170927
  Transmission Date: 20171128
  Serious: Yes (Hospitalization)
  Sender: FDA-Public Use
  Company Number: FR-ROCHE-1996106

PATIENT
  Age: 67 Year
  Sex: Male

DRUGS (3)
  1. AVASTIN [Suspect]
     Active Substance: BEVACIZUMAB
     Indication: MESOTHELIOMA
     Dosage: DATE OF MOST RECENT DOSE PRIOR TO SAE ON 06/AUG/2017
     Route: 041
     Dates: start: 201610
  2. ALIMTA [Suspect]
     Active Substance: PEMETREXED DISODIUM
     Indication: MESOTHELIOMA
     Route: 041
     Dates: start: 201610
  3. CARBOPLATINE [Concomitant]
     Active Substance: CARBOPLATIN
     Indication: MESOTHELIOMA
     Route: 041
     Dates: start: 201610, end: 20170906

REACTIONS (1)
  - Acute coronary syndrome [Recovered/Resolved with Sequelae]

NARRATIVE: CASE EVENT DATE: 20170720
